FAERS Safety Report 12304708 (Version 1)
Quarter: 2016Q2

REPORT INFORMATION
  Report Type: Spontaneous
  Country: US (occurrence: None)
  Receive Date: 20160425
  Receipt Date: 20160425
  Transmission Date: 20160815
  Serious: No
  Sender: FDA-Public Use
  Company Number: None

PATIENT
  Age: 65 Year
  Sex: Female
  Weight: 57.61 kg

DRUGS (5)
  1. PROLIA [Suspect]
     Active Substance: DENOSUMAB
     Indication: OSTEOPOROSIS
     Dosage: 60MG/ML SOLUTION  ONCE EVERY SIX MONTHS INJECTION
     Dates: start: 20160311
  2. VITAMIN D3 [Concomitant]
     Active Substance: CHOLECALCIFEROL
  3. CITRICAL CALCIUM [Concomitant]
  4. TEA [Concomitant]
     Active Substance: TEA LEAF
  5. CHAMOMILE TEA [Concomitant]
     Active Substance: MATRICARIA RECUTITA

REACTIONS (14)
  - Pain in extremity [None]
  - Oropharyngeal pain [None]
  - Night sweats [None]
  - Feeling abnormal [None]
  - Insomnia [None]
  - Back pain [None]
  - Anxiety [None]
  - Headache [None]
  - Ear pain [None]
  - Dizziness [None]
  - Arthralgia [None]
  - Blister [None]
  - Hypoaesthesia [None]
  - Chest pain [None]

NARRATIVE: CASE EVENT DATE: 20160311
